FAERS Safety Report 10639628 (Version 1)
Quarter: 2014Q4

REPORT INFORMATION
  Report Type: Spontaneous
  Country: US (occurrence: None)
  Receive Date: 20141205
  Receipt Date: 20141205
  Transmission Date: 20150529
  Serious: No
  Sender: FDA-Public Use
  Company Number: None

PATIENT
  Age: 51 Year
  Sex: Female
  Weight: 50.8 kg

DRUGS (1)
  1. COPAXONE [Suspect]
     Active Substance: GLATIRAMER ACETATE
     Indication: MULTIPLE SCLEROSIS
     Dosage: 1 DOSE/DAY, ONCE DAILY, GIVEN INTO/UNDER THE SKIN
     Dates: start: 200608, end: 201410

REACTIONS (2)
  - Chest discomfort [None]
  - Hypersensitivity [None]

NARRATIVE: CASE EVENT DATE: 20141011
